FAERS Safety Report 5506619-9 (Version None)
Quarter: 2007Q4

REPORT INFORMATION
  Report Type: 
  Country: None (occurrence: None)
  Receive Date: 20071105
  Receipt Date: 20071023
  Transmission Date: 20080405
  Serious: Yes (Other)
  Sender: FDA-Public Use
  Company Number: US-ROCHE-529025

PATIENT
  Sex: Female

DRUGS (4)
  1. CAPECITABINE [Suspect]
     Dosage: STARTING DOSE - GIVEN DAYS 2 TO 15 AND 23 TO 36
     Route: 065
  2. CAPECITABINE [Suspect]
     Route: 065
  3. IRINOTECAN HCL [Suspect]
     Dosage: GIVEN OVER 90 MINUTES ON DAYS 1, 8, 22 AND 29
     Route: 041
  4. ANTIEMETIC [Concomitant]
     Indication: PROPHYLAXIS

REACTIONS (1)
  - HYPONATRAEMIA [None]
